FAERS Safety Report 8494469-3 (Version None)
Quarter: 2012Q3

REPORT INFORMATION
  Report Type: 
  Country: None (occurrence: None)
  Receive Date: 20120709
  Receipt Date: 20120626
  Transmission Date: 20120928
  Serious: No
  Sender: FDA-Public Use
  Company Number: US-JNJFOC-20120614315

PATIENT
  Sex: Male
  Weight: 106.6 kg

DRUGS (3)
  1. FENTANYL-100 [Suspect]
     Indication: PAIN
     Route: 062
     Dates: start: 20090101
  2. WELLBUTRIN [Concomitant]
     Indication: DEPRESSION
     Route: 048
  3. ALBUTEROL [Concomitant]
     Indication: ASTHMA
     Route: 048

REACTIONS (3)
  - DRUG INEFFECTIVE [None]
  - WRONG TECHNIQUE IN DRUG USAGE PROCESS [None]
  - PRODUCT QUALITY ISSUE [None]
